FAERS Safety Report 5721436-2 (Version None)
Quarter: 2008Q2

REPORT INFORMATION
  Report Type: 
  Country: None (occurrence: None)
  Receive Date: 20080428
  Receipt Date: 20080428
  Transmission Date: 20081010
  Serious: No
  Sender: FDA-Public Use
  Company Number: None

PATIENT
  Age: 24 Year
  Sex: Female
  Weight: 58.9676 kg

DRUGS (1)
  1. MINOCYCLINE HCL [Suspect]
     Indication: ACNE
     Dosage: 100 MG  1 TIME PER DAY PO
     Route: 048
     Dates: start: 20080422, end: 20080424

REACTIONS (10)
  - ACTIVITIES OF DAILY LIVING IMPAIRED [None]
  - ASTHENIA [None]
  - DISTURBANCE IN ATTENTION [None]
  - DRY THROAT [None]
  - FATIGUE [None]
  - IMPAIRED DRIVING ABILITY [None]
  - IMPAIRED WORK ABILITY [None]
  - NASAL DISCOMFORT [None]
  - NASAL DRYNESS [None]
  - THROAT IRRITATION [None]
